FAERS Safety Report 5135765-7 (Version None)
Quarter: 2006Q4

REPORT INFORMATION
  Report Type: 
  Country: None (occurrence: None)
  Receive Date: 20061020
  Receipt Date: 20061004
  Transmission Date: 20070319
  Serious: Yes (Hospitalization)
  Sender: FDA-Public Use
  Company Number: DSA_61184_2006

PATIENT
  Age: 8 Year
  Sex: Female
  Weight: 45.8133 kg

DRUGS (2)
  1. DIASTAT [Suspect]
     Indication: CONVULSION
     Dosage: VAR PRN RC
     Route: 054
     Dates: start: 19980101, end: 20050101
  2. DIASTAT [Suspect]
     Indication: CONVULSION
     Dosage: 12.5 MG PRN RC
     Route: 054
     Dates: start: 20050101, end: 20060920

REACTIONS (5)
  - CONDITION AGGRAVATED [None]
  - CONVULSION [None]
  - INTESTINAL MASS [None]
  - RECTAL HAEMORRHAGE [None]
  - RECTAL POLYP [None]
